FAERS Safety Report 10506691 (Version 1)
Quarter: 2014Q3

REPORT INFORMATION
  Report Type: Spontaneous
  Country: US (occurrence: None)
  Receive Date: 20140915
  Receipt Date: 20140915
  Transmission Date: 20150326
  Serious: Yes (Other)
  Sender: FDA-Public Use
  Company Number: 2013-US-004015

PATIENT
  Age: 21 Year
  Sex: Female
  Weight: 58 kg

DRUGS (8)
  1. VITAMIN D3 [Concomitant]
     Active Substance: CHOLECALCIFEROL
  2. NUVIGIL [Concomitant]
     Active Substance: ARMODAFINIL
  3. XYREM [Suspect]
     Active Substance: SODIUM OXYBATE
     Indication: NARCOLEPSY
     Route: 048
     Dates: start: 20130531, end: 2013
  4. ATENOLOL (ATENOLOL) [Concomitant]
     Active Substance: ATENOLOL
  5. MAGNESIUM (MAGNESIUM) [Concomitant]
     Active Substance: MAGNESIUM
  6. ZINC (ZINC) [Concomitant]
  7. EFFEXOR (VENLAFAXINE HYDROCHLORIDE) [Concomitant]
  8. VITAMIN B12 [Concomitant]
     Active Substance: CYANOCOBALAMIN

REACTIONS (7)
  - Weight decreased [None]
  - Feeling abnormal [None]
  - Drug effect increased [None]
  - Contusion [None]
  - Dyspnoea [None]
  - Lacrimation increased [None]
  - Energy increased [None]

NARRATIVE: CASE EVENT DATE: 2013
